FAERS Safety Report 5258733-3 (Version None)
Quarter: 2007Q1

REPORT INFORMATION
  Report Type: 
  Country: None (occurrence: None)
  Receive Date: 20070306
  Receipt Date: 20070306
  Transmission Date: 20070707
  Serious: Yes (Hospitalization)
  Sender: FDA-Public Use
  Company Number: None

PATIENT
  Sex: Male
  Weight: 64.4108 kg

DRUGS (1)
  1. ABILIFY [Suspect]
     Dosage: 5 MG DAILY PO
     Route: 048
     Dates: start: 20060811, end: 20061031

REACTIONS (1)
  - CONVULSION [None]
